FAERS Safety Report 5906674-8 (Version None)
Quarter: 2008Q3

REPORT INFORMATION
  Report Type: 
  Country: None (occurrence: None)
  Receive Date: 20080930
  Receipt Date: 20080919
  Transmission Date: 20090109
  Serious: Yes (Other)
  Sender: FDA-Public Use
  Company Number: TCI2008A04238

PATIENT
  Age: 64 Year
  Sex: Male

DRUGS (5)
  1. ACTOS [Suspect]
     Indication: DIABETES MELLITUS
     Dosage: 30 MG (30 MG, 1 IN 1D) PER ORAL
     Route: 048
     Dates: start: 20080725
  2. DIOVAN [Suspect]
     Indication: HYPERTENSION
     Dosage: 80 MG (80 MG, 1 IN 1 D); 40 MG (40 MG, 1 IN 1 D) PER ORAL
     Route: 048
     Dates: start: 20080701, end: 20080729
  3. DIOVAN [Suspect]
     Indication: HYPERTENSION
     Dosage: 80 MG (80 MG, 1 IN 1 D); 40 MG (40 MG, 1 IN 1 D) PER ORAL
     Route: 048
     Dates: start: 20080731, end: 20080803
  4. ALLOPURINOL [Concomitant]
  5. THEO-DUR [Concomitant]

REACTIONS (8)
  - ALANINE AMINOTRANSFERASE INCREASED [None]
  - ASPARTATE AMINOTRANSFERASE INCREASED [None]
  - BLOOD PRESSURE INCREASED [None]
  - DIZZINESS POSTURAL [None]
  - HYPOTENSION [None]
  - MALAISE [None]
  - MUSCULOSKELETAL STIFFNESS [None]
  - NAUSEA [None]
